FAERS Safety Report 10701176 (Version 3)
Quarter: 2015Q2

REPORT INFORMATION
  Report Type: Spontaneous
  Country: US (occurrence: US)
  Receive Date: 20150109
  Receipt Date: 20150611
  Transmission Date: 20150821
  Serious: Yes (Hospitalization)
  Sender: FDA-Public Use
  Company Number: US-BAYER-2015-002813

PATIENT
  Age: 23 Year
  Sex: Female
  Weight: 49.89 kg

DRUGS (5)
  1. PRENATAL VITAMINS [Concomitant]
     Active Substance: VITAMINS
     Dosage: UNK
     Dates: start: 20050221
  2. CEFTIN [Concomitant]
     Active Substance: CEFUROXIME AXETIL
     Indication: URINARY TRACT INFECTION
  3. DARVOCET [Concomitant]
     Active Substance: ACETAMINOPHEN\PROPOXYPHENE HYDROCHLORIDE
     Indication: PAIN
  4. MIRENA [Suspect]
     Active Substance: LEVONORGESTREL
     Indication: CONTRACEPTION
     Dosage: 20 MCG/24HR, CONT
     Route: 015
     Dates: start: 20050406, end: 20060907
  5. ORTHO TRI CYCLEN [Concomitant]
     Active Substance: ETHINYL ESTRADIOL\NORGESTIMATE
     Dosage: UNK
     Dates: start: 20060904, end: 20060908

REACTIONS (13)
  - Uterine perforation [None]
  - Pelvic pain [None]
  - Genital haemorrhage [None]
  - Anxiety [None]
  - Medical device discomfort [None]
  - Depression [None]
  - Injury [None]
  - Emotional distress [None]
  - Fear [None]
  - Internal injury [None]
  - Abdominal pain [None]
  - Depressed mood [None]
  - Device issue [None]

NARRATIVE: CASE EVENT DATE: 200609
